FAERS Safety Report 7631902-0 (Version None)
Quarter: 2011Q3

REPORT INFORMATION
  Report Type: 
  Country: None (occurrence: None)
  Receive Date: 20110725
  Receipt Date: 20110506
  Transmission Date: 20111222
  Serious: No
  Sender: FDA-Public Use
  Company Number: US-BRISTOL-MYERS SQUIBB COMPANY-15724503

PATIENT
  Age: 74 Year
  Sex: Female
  Weight: 91 kg

DRUGS (1)
  1. COUMADIN [Suspect]
     Dosage: 1 DF = 1 1/2 TABS

REACTIONS (1)
  - PROTHROMBIN LEVEL DECREASED [None]
